FAERS Safety Report 18966264 (Version 1)
Quarter: 2021Q1

REPORT INFORMATION
  Report Type: Spontaneous
  Country: DE (occurrence: DE)
  Receive Date: 20210303
  Receipt Date: 20210303
  Transmission Date: 20210420
  Serious: Yes (Hospitalization, Other)
  Sender: FDA-Public Use
  Company Number: DE-ANIPHARMA-2021-DE-000031

PATIENT
  Age: 71 Year
  Sex: Female
  Weight: 42 kg

DRUGS (13)
  1. FUROSEMIDE. [Concomitant]
     Active Substance: FUROSEMIDE
     Dosage: 40
     Route: 065
     Dates: start: 201606
  2. BISOPROLOL [Concomitant]
     Active Substance: BISOPROLOL
     Dosage: DOSE TEXT: 5 MG 1/2?0?0 / DOSE: 1.25 MG DAILY
     Route: 065
  3. FUROSEMIDE, SPIRONOLACTONE [Concomitant]
     Active Substance: FUROSEMIDE
     Dosage: 50/20 DAILY
     Route: 065
  4. TORASEMIDE [Concomitant]
     Active Substance: TORSEMIDE
     Dosage: 10 MG DAILY
     Route: 065
  5. SACUBITRIL, VALSARTAN [Concomitant]
     Active Substance: SACUBITRIL\VALSARTAN
     Dosage: DOSE TEXT: 24/26 MG TWO TIMES DAILY / DOSE TEXT: 24/26 MG DAILY
     Route: 065
  6. RIVAROXABAN [Concomitant]
     Active Substance: RIVAROXABAN
     Dosage: 15 MG DAILY
     Route: 065
  7. AMLODIPINE, OLMESARTAN [Concomitant]
     Dosage: DOSE TEXT: 20/ 5/12.5 MG DAILY
     Route: 065
  8. SPIRONOLACTONE. [Concomitant]
     Active Substance: SPIRONOLACTONE
     Dosage: 25 MG DAILY
     Route: 065
  9. PANTOPRAZOLE [Concomitant]
     Active Substance: PANTOPRAZOLE
     Dosage: 20 MG DAILY
     Route: 065
  10. DONEPEZIL. [Concomitant]
     Active Substance: DONEPEZIL
     Dosage: 5 MG DAILY
     Route: 065
  11. EZETIMIBE, SIMVASTATIN [Concomitant]
     Active Substance: EZETIMIBE\SIMVASTATIN
     Dosage: 10/20 MG AT NIGHT
     Route: 065
  12. CANDESARTAN CILEXETIL AND HYDROCHLOROTHIAZIDE [Suspect]
     Active Substance: CANDESARTAN CILEXETIL\HYDROCHLOROTHIAZIDE
     Indication: PRODUCT USED FOR UNKNOWN INDICATION
     Dosage: 8/12.5 MG DAILY
     Route: 048
  13. DAPAGLIFLOZIN. [Suspect]
     Active Substance: DAPAGLIFLOZIN
     Dosage: 10 MG DAILY
     Route: 048

REACTIONS (11)
  - Dizziness [Unknown]
  - Cardiac failure [Unknown]
  - Brain natriuretic peptide abnormal [Unknown]
  - Performance status decreased [Unknown]
  - Dyspnoea [Unknown]
  - Weight decreased [Unknown]
  - Therapeutic product effect decreased [Unknown]
  - General physical health deterioration [Unknown]
  - Respiratory failure [Unknown]
  - Fatigue [Unknown]
  - Malaise [Unknown]

NARRATIVE: CASE EVENT DATE: 201207
